FAERS Safety Report 17470490 (Version 1)
Quarter: 2020Q1

REPORT INFORMATION
  Report Type: Report from Study
  Country: IR (occurrence: IR)
  Receive Date: 20200227
  Receipt Date: 20200227
  Transmission Date: 20200409
  Serious: Yes (Hospitalization)
  Sender: FDA-Public Use
  Company Number: IR-NOVOPROD-713882

PATIENT
  Age: 61 Year
  Sex: Female
  Weight: 90 kg

DRUGS (5)
  1. LOSARTAN. [Concomitant]
     Active Substance: LOSARTAN
     Dosage: Q25 MG, BID
  2. ATORVASTATIN [Concomitant]
     Active Substance: ATORVASTATIN
     Dosage: 10 MG, QD
  3. NITROCARDIN [Concomitant]
  4. NOVORAPID [Suspect]
     Active Substance: INSULIN ASPART
     Indication: TYPE 2 DIABETES MELLITUS
     Dosage: 15 IU, BID
     Route: 058
  5. LANTUS [Suspect]
     Active Substance: INSULIN GLARGINE
     Indication: PRODUCT USED FOR UNKNOWN INDICATION
     Dosage: 30 IU, BID
     Route: 065

REACTIONS (2)
  - Hyperglycaemia [Recovering/Resolving]
  - Hypertension [Recovering/Resolving]
